FAERS Safety Report 9881717 (Version 1)
Quarter: 2014Q1

REPORT INFORMATION
  Report Type: Spontaneous
  Country: US (occurrence: US)
  Receive Date: 20140207
  Receipt Date: 20140207
  Transmission Date: 20141002
  Serious: Yes (Other)
  Sender: FDA-Public Use
  Company Number: US-GILEAD-2012-0051320

PATIENT
  Sex: Male

DRUGS (2)
  1. TRUVADA [Suspect]
     Indication: HIV INFECTION
     Dosage: UNK
  2. TRUVADA [Suspect]
     Indication: HEPATITIS B

REACTIONS (2)
  - Hepatitis B DNA increased [Not Recovered/Not Resolved]
  - Drug ineffective [Not Recovered/Not Resolved]
